FAERS Safety Report 6315083-1 (Version None)
Quarter: 2009Q3

REPORT INFORMATION
  Report Type: 
  Country: None (occurrence: None)
  Receive Date: 20090818
  Receipt Date: 20090818
  Transmission Date: 20100115
  Serious: Yes (Death)
  Sender: FDA-Public Use
  Company Number: None

PATIENT
  Sex: Female

DRUGS (1)
  1. CLOZARIL [Suspect]
     Indication: SCHIZOPHRENIA
     Dosage: 400 MG AT BEDTIMEN PO
     Route: 048

REACTIONS (3)
  - ASTHMA [None]
  - NASOPHARYNGITIS [None]
  - UNRESPONSIVE TO STIMULI [None]
